FAERS Safety Report 10184038 (Version 1)
Quarter: 2014Q2

REPORT INFORMATION
  Report Type: Spontaneous
  Country: TR (occurrence: TR)
  Receive Date: 20140520
  Receipt Date: 20140520
  Transmission Date: 20141212
  Serious: Yes (Hospitalization, Other)
  Sender: FDA-Public Use
  Company Number: TR-ACTAVIS-2014-10344

PATIENT
  Age: 87 Year
  Sex: Male

DRUGS (4)
  1. METHYLPREDNISOLONE (UNKNOWN) [Suspect]
     Indication: SUDDEN VISUAL LOSS
     Dosage: 64 MG, DAILY; MAINTENANCE DOSE
     Route: 065
  2. METHYLPREDNISOLONE (UNKNOWN) [Suspect]
     Dosage: 1 G, DAILY; FOR 3 DAYS
     Route: 065
     Dates: start: 201007
  3. CLARITHROMYCIN (UNKNOWN) [Suspect]
     Indication: PNEUMONIA
     Dosage: UNKNOWN
     Route: 048
     Dates: start: 201008
  4. AMPICILLIN-SULBACTAM (UNKNOWN) [Suspect]
     Indication: PNEUMONIA
     Dosage: UNKNOWN
     Route: 042
     Dates: start: 201008

REACTIONS (2)
  - Cytomegalovirus oesophagitis [Recovered/Resolved]
  - Pneumonia [Unknown]
